FAERS Safety Report 12501440 (Version 1)
Quarter: 2016Q2

REPORT INFORMATION
  Report Type: Spontaneous
  Country: FR (occurrence: FR)
  Receive Date: 20160627
  Receipt Date: 20160627
  Transmission Date: 20160815
  Serious: Yes (Hospitalization)
  Sender: FDA-Public Use
  Company Number: FR-BAYER-2016-118581

PATIENT
  Age: 67 Year
  Sex: Male

DRUGS (8)
  1. JANUVIA [Concomitant]
     Active Substance: SITAGLIPTIN PHOSPHATE
  2. METFORMIN [Concomitant]
     Active Substance: METFORMIN HYDROCHLORIDE
  3. ESOMEPRAZOLE [Concomitant]
     Active Substance: ESOMEPRAZOLE
  4. ATENOLOL. [Concomitant]
     Active Substance: ATENOLOL
  5. KARDEGIC [Concomitant]
     Active Substance: ASPIRIN LYSINE
  6. STIVARGA [Suspect]
     Active Substance: REGORAFENIB
     Indication: COLORECTAL CANCER METASTATIC
     Dosage: UNK
     Route: 048
     Dates: start: 201603, end: 201604
  7. GLICLAZIDE [Concomitant]
     Active Substance: GLICLAZIDE
  8. ZOPHREN [Concomitant]
     Active Substance: ONDANSETRON

REACTIONS (1)
  - Pleural fistula [Not Recovered/Not Resolved]

NARRATIVE: CASE EVENT DATE: 20160521
